FAERS Safety Report 24236739 (Version 4)
Quarter: 2025Q1

REPORT INFORMATION
  Report Type: Spontaneous
  Country: US (occurrence: US)
  Receive Date: 20240822
  Receipt Date: 20250207
  Transmission Date: 20250409
  Serious: Yes (Hospitalization, Other)
  Sender: BRISTOL-MYERS SQUIBB COMPANY
  Company Number: US-BRISTOL-MYERS SQUIBB COMPANY-2024-131907

PATIENT
  Age: 69 Year
  Sex: Male

DRUGS (5)
  1. POMALYST [Suspect]
     Active Substance: POMALIDOMIDE
     Indication: Plasma cell myeloma recurrent
     Route: 048
  2. POMALYST [Suspect]
     Active Substance: POMALIDOMIDE
     Indication: Plasma cell myeloma
     Dosage: FREQ: 21
     Route: 048
  3. POSACONAZOLE [Concomitant]
     Active Substance: POSACONAZOLE
     Indication: Product used for unknown indication
  4. POSACONAZOLE [Concomitant]
     Active Substance: POSACONAZOLE
  5. IMMUNOGLOBULINS [Concomitant]
     Indication: Product used for unknown indication

REACTIONS (10)
  - COVID-19 [Not Recovered/Not Resolved]
  - Renal failure [Not Recovered/Not Resolved]
  - Pneumonia [Not Recovered/Not Resolved]
  - Adenovirus infection [Not Recovered/Not Resolved]
  - Weight decreased [Unknown]
  - Muscle atrophy [Unknown]
  - Asthenia [Unknown]
  - Hypotension [Unknown]
  - Pyrexia [Unknown]
  - Product dose omission in error [Unknown]
